FAERS Safety Report 5301861-4 (Version None)
Quarter: 2007Q2

REPORT INFORMATION
  Report Type: 
  Country: None (occurrence: None)
  Receive Date: 20070419
  Receipt Date: 20070411
  Transmission Date: 20071010
  Serious: Yes (Hospitalization)
  Sender: FDA-Public Use
  Company Number: CH-ROCHE-483598

PATIENT
  Age: 66 Year
  Sex: Male

DRUGS (8)
  1. CAPECITABINE [Suspect]
     Indication: COLORECTAL CANCER
     Route: 048
     Dates: start: 20061108
  2. OXALIPLATIN [Suspect]
     Indication: COLORECTAL CANCER
     Route: 042
     Dates: start: 20061108
  3. IRINOTECAN HCL [Suspect]
     Indication: COLORECTAL CANCER
     Route: 042
     Dates: start: 20061115
  4. GLICLAZIDUM [Concomitant]
     Route: 048
     Dates: start: 20040615
  5. ACIDUM ACETYLSALICYLICUM [Concomitant]
     Route: 048
     Dates: start: 20040615
  6. CANDESARTANUM [Concomitant]
     Route: 048
     Dates: start: 20040615
  7. LEVOTHYROXINUM NATRICUM [Concomitant]
     Route: 048
     Dates: start: 20040615
  8. ZOLPIDEM [Concomitant]
     Route: 048
     Dates: start: 20061220

REACTIONS (3)
  - HYPOKALAEMIA [None]
  - MENIERE'S DISEASE [None]
  - VOMITING [None]
